FAERS Safety Report 7473334-4 (Version None)
Quarter: 2011Q2

REPORT INFORMATION
  Report Type: 
  Country: None (occurrence: None)
  Receive Date: 20110503
  Receipt Date: 20110421
  Transmission Date: 20111010
  Serious: Yes (Other)
  Sender: FDA-Public Use
  Company Number: 20110356

PATIENT
  Sex: Female

DRUGS (6)
  1. IMMITREX [Concomitant]
  2. DEXAMETHASONE SODIUM PHOSPHATE [Suspect]
     Indication: MUSCLE TIGHTNESS
     Dosage: INTRAMUSCULAR
     Route: 030
     Dates: start: 20090405, end: 20090405
  3. DEXAMETHASONE SODIUM PHOSPHATE [Suspect]
     Indication: MUSCLE TIGHTNESS
     Dosage: INTRAMUSCULAR
     Route: 030
     Dates: start: 20101228, end: 20101228
  4. PROZAC [Concomitant]
  5. SUDAFED 12 HOUR [Concomitant]
  6. HYDROCODONE [Concomitant]

REACTIONS (2)
  - HEPATIC ENZYME INCREASED [None]
  - HYPERSENSITIVITY [None]
